FAERS Safety Report 8819824 (Version 2)
Quarter: 2012Q4

REPORT INFORMATION
  Report Type: 
  Country: NL (occurrence: NL)
  Receive Date: 20121001
  Receipt Date: 20121114
  Transmission Date: 20130627
  Serious: Yes (Hospitalization)
  Sender: FDA-Public Use
  Company Number: NL-PFIZER INC-2012237562

PATIENT
  Age: 54 Year
  Sex: Female
  Weight: 89 kg

DRUGS (10)
  1. GENOTROPIN [Suspect]
     Indication: GROWTH HORMONE DEFICIENCY
     Dosage: 0.3 mg/day, 7 injections/week
     Route: 058
     Dates: start: 20040107
  2. LEVOTHYROXINE [Concomitant]
     Indication: BLOOD THYROID STIMULATING HORMONE DECREASED
     Dosage: 100 ug, 1x/day
     Dates: start: 19830401
  3. DESMOPRESSINE [Concomitant]
     Indication: BLOOD ANTIDIURETIC HORMONE DECREASED
     Dosage: 1 UNK, UNK
     Dates: start: 19840117
  4. HYDROCORTISON [Concomitant]
     Indication: BLOOD CORTICOTROPHIN DECREASED
     Dosage: 20 mg, daily
     Dates: start: 19950119
  5. ATENOLOL [Concomitant]
     Indication: ESSENTIAL HYPERTENSION
     Dosage: UNK
     Dates: start: 20000101
  6. SELEKTINE [Concomitant]
     Indication: PURE HYPERCHOLESTEROLAEMIA
     Dosage: 20 mg, 1x/day
     Dates: start: 20000101
  7. FUROSEMIDE [Concomitant]
     Dosage: 20 mg, 1x/day
     Dates: start: 20010227
  8. COZAAR [Concomitant]
     Indication: HYPERTENSION
     Dosage: 100 mg, 1x/day
     Dates: start: 20021029
  9. DHEA [Concomitant]
     Dosage: UNK
     Dates: start: 20070531
  10. SELOKEEN [Concomitant]
     Dosage: 100 mg, 1x/day

REACTIONS (1)
  - Transient ischaemic attack [Recovered/Resolved]
